FAERS Safety Report 5793331-4 (Version None)
Quarter: 2008Q2

REPORT INFORMATION
  Report Type: 
  Country: None (occurrence: None)
  Receive Date: 20080601
  Receipt Date: 20080102
  Transmission Date: 20081010
  Serious: No
  Sender: FDA-Public Use
  Company Number: US200801000402

PATIENT
  Age: 47 Year
  Sex: Female

DRUGS (3)
  1. BYETTA [Suspect]
     Indication: TYPE 2 DIABETES MELLITUS
     Dosage: 5 UG, 2/D, SUBCUTANEOUS
     Route: 058
     Dates: start: 20071201
  2. GLUCOPHAGE /USA/ (METFORMIN HYDROCHLORIDE) [Concomitant]
  3. DRUG USED IN DIABETES [Concomitant]

REACTIONS (5)
  - INJECTION SITE BRUISING [None]
  - INJECTION SITE DISCOMFORT [None]
  - INJECTION SITE PARAESTHESIA [None]
  - IRRITABILITY [None]
  - PAIN [None]
